FAERS Safety Report 4306799-7 (Version None)
Quarter: 2004Q1

REPORT INFORMATION
  Report Type: 
  Country: None (occurrence: None)
  Receive Date: 20040225
  Receipt Date: 20040211
  Transmission Date: 20041129
  Serious: Yes (Other)
  Sender: FDA-Public Use
  Company Number: USA040156493

PATIENT
  Age: 83 Year
  Sex: Female

DRUGS (1)
  1. FORTEO [Suspect]
     Dates: start: 20031101

REACTIONS (4)
  - BLOOD PRESSURE FLUCTUATION [None]
  - EYE HAEMORRHAGE [None]
  - OCULAR VASCULAR DISORDER [None]
  - PHARMACEUTICAL PRODUCT COMPLAINT [None]
